FAERS Safety Report 7262052-3 (Version None)
Quarter: 2011Q1

REPORT INFORMATION
  Report Type: 
  Country: None (occurrence: None)
  Receive Date: 20110130
  Receipt Date: 20101022
  Transmission Date: 20110831
  Serious: No
  Sender: FDA-Public Use
  Company Number: US-ABBOTT-10P-163-0681434-00

PATIENT
  Sex: Female
  Weight: 83.536 kg

DRUGS (12)
  1. PROPOXAFENE [Concomitant]
     Indication: PAIN
  2. ATENOLOL [Concomitant]
     Indication: HYPERTENSION
  3. SIMVASTATIN [Concomitant]
     Indication: BLOOD CHOLESTEROL INCREASED
  4. HUMIRA [Suspect]
     Indication: PSORIATIC ARTHROPATHY
  5. LYRICA [Concomitant]
     Indication: FIBROMYALGIA
  6. CYCLOBENZAPRINE [Concomitant]
     Indication: FIBROMYALGIA
  7. ULTRAM [Concomitant]
     Indication: PAIN
  8. HUMIRA [Suspect]
     Indication: PSORIASIS
  9. NAPROSYN [Concomitant]
     Indication: PAIN
  10. SAVELLA [Concomitant]
     Indication: DEPRESSION
  11. AMITRIPTYLINE HCL [Concomitant]
     Indication: MIGRAINE
  12. ESTRADIOL [Concomitant]
     Indication: HYSTERECTOMY

REACTIONS (1)
  - LACERATION [None]
